FAERS Safety Report 10170483 (Version 1)
Quarter: 2014Q2

REPORT INFORMATION
  Report Type: Report from Study
  Country: BR (occurrence: BR)
  Receive Date: 20140513
  Receipt Date: 20140513
  Transmission Date: 20141212
  Serious: Yes (Other)
  Sender: FDA-Public Use
  Company Number: PHHY2014BR056853

PATIENT
  Sex: Female
  Weight: 58 kg

DRUGS (3)
  1. GALVUS MET [Suspect]
     Indication: DIABETES MELLITUS MANAGEMENT
     Dosage: 1 DF, DAILY (METF 850 MG, VILD 50 MG
  2. DIOVAN [Suspect]
     Indication: HYPERTENSION
     Dosage: 1 DF, (160 MG) DAILY
  3. VITAMIN D [Concomitant]
     Indication: VITAMIN D DEFICIENCY
     Dosage: 1 DF, QW

REACTIONS (2)
  - Cataract [Recovering/Resolving]
  - Vision blurred [Recovering/Resolving]
